FAERS Safety Report 6426643-1 (Version None)
Quarter: 2009Q4

REPORT INFORMATION
  Report Type: 
  Country: None (occurrence: None)
  Receive Date: 20091104
  Receipt Date: 20091027
  Transmission Date: 20100525
  Serious: Yes (Other)
  Sender: FDA-Public Use
  Company Number: GXKR2009JP11881

PATIENT
  Age: 72 Year
  Sex: Male

DRUGS (4)
  1. RIFAMPICIN (NGX) [Suspect]
     Dosage: UNK
     Route: 048
     Dates: start: 20090901
  2. ISCOTIN [Suspect]
     Dosage: UNK
     Route: 065
     Dates: start: 20090901
  3. EBUTOL [Suspect]
     Dosage: UNK
     Route: 048
     Dates: start: 20090901
  4. PYRAMIDE [Concomitant]
     Dosage: UNK
     Route: 048
     Dates: start: 20090901

REACTIONS (1)
  - LUNG DISORDER [None]
